FAERS Safety Report 6562298-3 (Version None)
Quarter: 2010Q1

REPORT INFORMATION
  Report Type: 
  Country: None (occurrence: None)
  Receive Date: 20100130
  Receipt Date: 20091106
  Transmission Date: 20100710
  Serious: No
  Sender: FDA-Public Use
  Company Number: US-ABBOTT-09P-163-0607482-00

PATIENT
  Sex: Female
  Weight: 52.664 kg

DRUGS (10)
  1. HUMIRA [Suspect]
     Indication: CROHN'S DISEASE
     Dates: start: 20090914, end: 20090914
  2. HUMIRA [Suspect]
  3. OXYBUTYNIN ER [Concomitant]
     Indication: HYPERTONIC BLADDER
  4. IMURAN [Concomitant]
     Indication: CROHN'S DISEASE
  5. CRESTOR [Concomitant]
     Indication: BLOOD CHOLESTEROL INCREASED
  6. PRILOSEC [Concomitant]
     Indication: GASTROOESOPHAGEAL REFLUX DISEASE
     Dosage: OTC
  7. DOXYCYCLINE [Concomitant]
     Indication: ACNE
  8. DOXYCYCLINE [Concomitant]
     Indication: CYSTITIS
  9. RESTASIS [Concomitant]
     Indication: BLEPHARITIS
  10. DECADRON [Concomitant]
     Indication: DRUG USE FOR UNKNOWN INDICATION
     Dates: start: 20090901, end: 20090901

REACTIONS (2)
  - FLUSHING [None]
  - PRURITUS [None]
